FAERS Safety Report 9532113 (Version 1)
Quarter: 2013Q3

REPORT INFORMATION
  Report Type: Spontaneous
  Country: FR (occurrence: FR)
  Receive Date: 20130918
  Receipt Date: 20130918
  Transmission Date: 20140515
  Serious: Yes (Other)
  Sender: FDA-Public Use
  Company Number: FR-PFIZER INC-2013261915

PATIENT
  Age: 79 Year
  Sex: Male
  Weight: 60 kg

DRUGS (4)
  1. TYGACIL [Suspect]
     Dosage: 100 MG AS LOADING DOSE AND THEN 50 MG, 2X/DAY
     Route: 042
     Dates: start: 20110404
  2. AMIKACIN MYLAN [Suspect]
     Dosage: 900 MG, 1X/DAY
     Route: 042
     Dates: start: 20110321, end: 20110327
  3. AMIKACIN MYLAN [Suspect]
     Dosage: 700 MG, 1X/DAY
     Route: 042
     Dates: start: 20110329, end: 20110404
  4. MERONEM [Suspect]
     Dosage: 2 G, 3X/DAY
     Route: 042
     Dates: start: 20110322, end: 20110404

REACTIONS (4)
  - Renal tubular disorder [Recovering/Resolving]
  - Hypophosphataemia [Recovering/Resolving]
  - Hypocalcaemia [Recovering/Resolving]
  - Hypomagnesaemia [Recovered/Resolved]
